FAERS Safety Report 9773698 (Version 1)
Quarter: 2013Q4

REPORT INFORMATION
  Report Type: Spontaneous
  Country: US (occurrence: US)
  Receive Date: 20131219
  Receipt Date: 20131219
  Transmission Date: 20140711
  Serious: No
  Sender: FDA-Public Use
  Company Number: US-MYLANLABS-2013S1001540

PATIENT
  Age: 71 Year
  Sex: Female

DRUGS (1)
  1. SOTRADECOL [Suspect]
     Indication: VARICOSE VEIN
     Route: 042
     Dates: start: 20121020, end: 20121020

REACTIONS (5)
  - Skin ulcer [Not Recovered/Not Resolved]
  - Scab [Not Recovered/Not Resolved]
  - Injection site pain [Not Recovered/Not Resolved]
  - Injection site erythema [Not Recovered/Not Resolved]
  - Tenderness [Not Recovered/Not Resolved]
